FAERS Safety Report 6153085-9 (Version None)
Quarter: 2009Q2

REPORT INFORMATION
  Report Type: 
  Country: None (occurrence: None)
  Receive Date: 20090409
  Receipt Date: 20090401
  Transmission Date: 20091009
  Serious: Yes (Hospitalization)
  Sender: FDA-Public Use
  Company Number: 2009040012

PATIENT
  Age: 49 Year
  Sex: Female
  Weight: 34.0198 kg

DRUGS (9)
  1. SOMA [Suspect]
     Indication: PAIN
     Dosage: 1 DOSE, ORAL
     Route: 048
     Dates: start: 20080601, end: 20080601
  2. REBIF [Suspect]
     Indication: MULTIPLE SCLEROSIS
     Dosage: 9.4286 MCG (22 MCG, 3 IN 1 WK), SUBCUTANEOUS
     Route: 058
     Dates: start: 20040604
  3. CELEXA [Concomitant]
  4. LORAZEPAM [Concomitant]
  5. CELLCEPT/MYCOPENOLATE MOFETIL) [Concomitant]
  6. BACLOFEN [Concomitant]
  7. FOSAMAX [Concomitant]
  8. DITROPAN [Concomitant]
  9. TRAMADOL HCL [Concomitant]

REACTIONS (4)
  - ASTHENIA [None]
  - CHEST PAIN [None]
  - RASH [None]
  - VOMITING [None]
